FAERS Safety Report 9373122 (Version 1)
Quarter: 2013Q2

REPORT INFORMATION
  Report Type: Spontaneous
  Country: US (occurrence: US)
  Receive Date: 20130627
  Receipt Date: 20130627
  Transmission Date: 20140414
  Serious: No
  Sender: FDA-Public Use
  Company Number: US-PFIZER INC-2013187681

PATIENT
  Age: 66 Year
  Sex: Male
  Weight: 94.33 kg

DRUGS (2)
  1. DEPO-TESTOSTERONE [Suspect]
     Indication: BLOOD TESTOSTERONE DECREASED
     Dosage: 400 MG, EVERY 2 WEEKS
     Route: 030
     Dates: start: 2010
  2. LISINOPRIL W/HYDROCHLOROTHIAZIDE [Concomitant]
     Indication: HYPERTENSION
     Dosage: LISINOPRIL 20MG / HYDROCHLOROTHIAZIDE 12.5 MG, 1X/DAY

REACTIONS (4)
  - Pyrexia [Unknown]
  - Malaise [Unknown]
  - Injection site swelling [Unknown]
  - Injection site mass [Unknown]
